FAERS Safety Report 5366192-5 (Version None)
Quarter: 2007Q2

REPORT INFORMATION
  Report Type: 
  Country: None (occurrence: None)
  Receive Date: 20070620
  Receipt Date: 20070605
  Transmission Date: 20071010
  Serious: Yes (Hospitalization)
  Sender: FDA-Public Use
  Company Number: 2007S1005035

PATIENT
  Age: 86 Year
  Sex: Female

DRUGS (8)
  1. FENTANYL TRANSDERMAL SYSTEM [Suspect]
     Indication: BACK PAIN
     Dosage: SEE IMAGE, TRANSDERMAL
     Route: 062
     Dates: end: 20070511
  2. FENTANYL TRANSDERMAL SYSTEM [Suspect]
     Indication: BACK PAIN
     Dosage: SEE IMAGE, TRANSDERMAL
     Route: 062
     Dates: start: 20060101
  3. LASIX [Concomitant]
  4. POTASSIUM CHLORIDE [Concomitant]
  5. TRANXENE [Concomitant]
  6. PLAVIX [Concomitant]
  7. LEVOTHYROXINE SODIUM [Concomitant]
  8. OXYBUTIN [Concomitant]

REACTIONS (6)
  - CONDITION AGGRAVATED [None]
  - CONFUSIONAL STATE [None]
  - DYSARTHRIA [None]
  - DYSPHAGIA [None]
  - GAIT DISTURBANCE [None]
  - INCORRECT DOSE ADMINISTERED [None]
